FAERS Safety Report 6518236-2 (Version None)
Quarter: 2009Q4

REPORT INFORMATION
  Report Type: 
  Country: None (occurrence: None)
  Receive Date: 20091223
  Receipt Date: 20091223
  Transmission Date: 20100525
  Serious: No
  Sender: FDA-Public Use
  Company Number: None

PATIENT

DRUGS (1)
  1. ROPIVACAINE HYDROCHLORIDE [Suspect]
     Dates: start: 20091214, end: 20091214

REACTIONS (2)
  - DRUG TOLERANCE [None]
  - PRODUCT COMPOUNDING QUALITY ISSUE [None]
